FAERS Safety Report 15986406 (Version 1)
Quarter: 2019Q1

REPORT INFORMATION
  Report Type: Spontaneous
  Country: US (occurrence: US)
  Receive Date: 20190220
  Receipt Date: 20190220
  Transmission Date: 20190418
  Serious: No
  Sender: FDA-Public Use
  Company Number: None

PATIENT
  Age: 48 Year
  Sex: Female
  Weight: 67.95 kg

DRUGS (18)
  1. COQ10 [Concomitant]
     Active Substance: UBIDECARENONE
  2. VITAMIN B COMPLEX [Concomitant]
     Active Substance: CYANOCOBALAMIN\DEXPANTHENOL\NIACINAMIDE\PYRIDOXINE HYDROCHLORIDE\RIBOFLAVIN 5^-PHOSPHATE SODIUM\THIAMINE HYDROCHLORIDE\VITAMIN B COMPLEX
  3. COLACE [Concomitant]
     Active Substance: DOCUSATE SODIUM
  4. VITAMIN C [Concomitant]
     Active Substance: ASCORBIC ACID
  5. NADH [Concomitant]
     Active Substance: NADH
  6. VITAMIN D3 [Concomitant]
     Active Substance: CHOLECALCIFEROL
  7. HYALURONIC ACID WITH COLLAGEN [Concomitant]
  8. VALTREX [Suspect]
     Active Substance: VALACYCLOVIR HYDROCHLORIDE
     Indication: HERPES ZOSTER
     Dosage: ?          QUANTITY:1 TABLET(S);?
     Route: 048
     Dates: start: 20190127, end: 20190203
  9. CPAP [Concomitant]
     Active Substance: DEVICE
  10. ARMODAFINIL. [Concomitant]
     Active Substance: ARMODAFINIL
  11. ALPHA LIPOIC ACID [Concomitant]
     Active Substance: .ALPHA.-LIPOIC ACID
  12. GLUCOSAMINE [Concomitant]
     Active Substance: GLUCOSAMINE
  13. ZINC. [Concomitant]
     Active Substance: ZINC
  14. I-CARNITINE [Concomitant]
  15. ZYRTEC [Concomitant]
     Active Substance: CETIRIZINE HYDROCHLORIDE
  16. MIDODRINE [Concomitant]
     Active Substance: MIDODRINE
  17. MAGNESIUM [Concomitant]
     Active Substance: MAGNESIUM
  18. IRON [Concomitant]
     Active Substance: IRON

REACTIONS (2)
  - Pruritus [None]
  - Rash [None]

NARRATIVE: CASE EVENT DATE: 20190129
